FAERS Safety Report 14610230 (Version 3)
Quarter: 2018Q1

REPORT INFORMATION
  Report Type: Spontaneous
  Country: DE (occurrence: DE)
  Receive Date: 20180307
  Receipt Date: 20180330
  Transmission Date: 20180509
  Serious: Yes (Life-Threatening, Hospitalization)
  Sender: FDA-Public Use
  Company Number: DE-BIOGEN-2018BI00535900

PATIENT
  Age: 47 Year
  Sex: Female
  Weight: 140 kg

DRUGS (7)
  1. BACLOFEN. [Concomitant]
     Active Substance: BACLOFEN
     Indication: MUSCLE RELAXANT THERAPY
     Route: 065
  2. SATIVEX [Concomitant]
     Active Substance: NABIXIMOLS
     Indication: PRODUCT USED FOR UNKNOWN INDICATION
     Route: 065
  3. PANTOPRAZOL [Concomitant]
     Active Substance: PANTOPRAZOLE SODIUM
     Indication: PRODUCT USED FOR UNKNOWN INDICATION
     Route: 065
  4. ZINBRYTA [Suspect]
     Active Substance: DACLIZUMAB
     Indication: RELAPSING-REMITTING MULTIPLE SCLEROSIS
     Route: 058
     Dates: start: 201703, end: 20170926
  5. TRAMADOL. [Concomitant]
     Active Substance: TRAMADOL
     Indication: PRODUCT USED FOR UNKNOWN INDICATION
     Route: 065
  6. RAMIPRIL. [Concomitant]
     Active Substance: RAMIPRIL
     Indication: PRODUCT USED FOR UNKNOWN INDICATION
     Route: 065
  7. DICLOFENAC [Concomitant]
     Active Substance: DICLOFENAC
     Indication: PRODUCT USED FOR UNKNOWN INDICATION
     Route: 065

REACTIONS (18)
  - Clostridium difficile colitis [Recovered/Resolved]
  - Enterococcal infection [Unknown]
  - Meningitis tuberculous [Unknown]
  - Multiple sclerosis relapse [Recovered/Resolved with Sequelae]
  - Dyspnoea [Unknown]
  - Eosinophilia [Unknown]
  - Meningitis aseptic [Unknown]
  - Varicella zoster virus infection [Unknown]
  - Staphylococcal infection [Unknown]
  - Liver function test increased [Unknown]
  - Leukocytosis [Unknown]
  - Urinary tract infection fungal [Unknown]
  - Hypertensive crisis [Unknown]
  - Herpes simplex [Unknown]
  - Pyrexia [Unknown]
  - Anaemia [Unknown]
  - Renal failure [Unknown]
  - Vasculitis cerebral [Unknown]

NARRATIVE: CASE EVENT DATE: 201711
